FAERS Safety Report 4890072-2 (Version None)
Quarter: 2006Q1

REPORT INFORMATION
  Report Type: 
  Country: None (occurrence: None)
  Receive Date: 20060124
  Receipt Date: 20060110
  Transmission Date: 20060701
  Serious: Yes (Life-Threatening)
  Sender: FDA-Public Use
  Company Number: FR-BRISTOL-MYERS SQUIBB COMPANY-13257787

PATIENT
  Age: 67 Year
  Sex: Male

DRUGS (4)
  1. ENDOXAN [Suspect]
     Indication: NON-HODGKIN'S LYMPHOMA STAGE IV
     Route: 042
     Dates: start: 20040128, end: 20040525
  2. VINCRISTINE SULFATE [Suspect]
     Indication: NON-HODGKIN'S LYMPHOMA STAGE IV
     Route: 042
     Dates: start: 20040128, end: 20040525
  3. ADRIBLASTIN [Suspect]
     Indication: NON-HODGKIN'S LYMPHOMA STAGE IV
     Route: 042
     Dates: start: 20040128, end: 20040525
  4. MABTHERA [Suspect]
     Indication: NON-HODGKIN'S LYMPHOMA STAGE IV
     Route: 042
     Dates: start: 20040128, end: 20040525

REACTIONS (2)
  - LEUKAEMIA [None]
  - TREATMENT RELATED SECONDARY MALIGNANCY [None]
